FAERS Safety Report 8428162-X (Version None)
Quarter: 2012Q2

REPORT INFORMATION
  Report Type: 
  Country: None (occurrence: None)
  Receive Date: 20120611
  Receipt Date: 20120601
  Transmission Date: 20120825
  Serious: Yes (Death, Hospitalization, Other)
  Sender: FDA-Public Use
  Company Number: GB-PFIZER INC-2012128728

PATIENT
  Age: 43 Year
  Sex: Male

DRUGS (10)
  1. CIPROFLOXACIN HCL [Suspect]
     Indication: MYCOBACTERIUM FORTUITUM INFECTION
     Dosage: 500 MG, 2X/DAY
     Route: 065
  2. CLARITHROMYCIN [Suspect]
     Indication: MYCOBACTERIUM FORTUITUM INFECTION
     Dosage: 500 MG, 2X/DAY
     Route: 065
  3. OSELTAMIVIR [Suspect]
     Indication: PRODUCT USED FOR UNKNOWN INDICATION
     Dosage: 75 MG, 2X/DAY
     Route: 051
  4. CYCLOPHOSPHAMIDE [Suspect]
     Indication: IMMUNOSUPPRESSION
     Dosage: 100 MG, 1X/DAY
     Route: 048
  5. AMPHOTERICIN B [Suspect]
     Indication: ASPERGILLOSIS
     Route: 065
  6. PREDNISOLONE [Suspect]
     Indication: IMMUNOSUPPRESSION
     Dosage: 60 MG, UNK
     Route: 065
  7. CIPROFLOXACIN HCL [Suspect]
     Dosage: 60 MG
  8. VORICONAZOLE [Suspect]
     Indication: ASPERGILLOSIS
     Dosage: UNK
     Route: 065
  9. TEICOPLANIN [Suspect]
     Indication: PRODUCT USED FOR UNKNOWN INDICATION
     Dosage: 400 MG, 1X/DAY
     Route: 051
  10. MEROPENEM [Suspect]
     Indication: PRODUCT USED FOR UNKNOWN INDICATION
     Dosage: 1 G, 2X/DAY
     Route: 051

REACTIONS (16)
  - LIVER INJURY [None]
  - HALLUCINATION, VISUAL [None]
  - CARDIO-RESPIRATORY ARREST [None]
  - RENAL IMPAIRMENT [None]
  - DYSPNOEA [None]
  - MYCOBACTERIUM FORTUITUM INFECTION [None]
  - CARDIAC FAILURE [None]
  - RENAL FAILURE [None]
  - RESPIRATORY FAILURE [None]
  - BRONCHOPULMONARY ASPERGILLOSIS [None]
  - INFLUENZA [None]
  - HAEMOPTYSIS [None]
  - SEPSIS SYNDROME [None]
  - NEUTROPENIA [None]
  - DEATH [None]
  - DEVICE RELATED INFECTION [None]
